FAERS Safety Report 8577718-2 (Version None)
Quarter: 2012Q3

REPORT INFORMATION
  Report Type: 
  Country: None (occurrence: None)
  Receive Date: 20120808
  Receipt Date: 20120727
  Transmission Date: 20120928
  Serious: Yes (Hospitalization, Other)
  Sender: FDA-Public Use
  Company Number: DE-AMGEN-DEUSP2012041122

PATIENT
  Age: 65 Year
  Sex: Female

DRUGS (7)
  1. TORSEMIDE [Concomitant]
     Indication: HYPERTENSION
  2. TORSEMIDE [Concomitant]
     Dosage: 5 MG, DAILY
  3. ENBREL [Suspect]
     Indication: RHEUMATOID ARTHRITIS
     Dosage: 50 MG PER WEEK OR EVERY 6 (NOS)
     Dates: start: 20081216
  4. SIMVASTATIN [Concomitant]
     Indication: MYOCARDIAL INFARCTION
     Dosage: 20 UNK, DAILY
     Route: 048
  5. VALSARTAN [Concomitant]
     Dosage: 40 MG, DAILY
     Route: 048
  6. MARCUMAR [Concomitant]
     Indication: AORTIC VALVE REPLACEMENT
     Dosage: INR 2.5
     Route: 048
  7. TORSEMIDE [Concomitant]
     Indication: CARDIAC FAILURE
     Dosage: 5 MG, DAILY
     Route: 048

REACTIONS (3)
  - DYSARTHRIA [None]
  - MUSCULAR WEAKNESS [None]
  - TRANSIENT ISCHAEMIC ATTACK [None]
